FAERS Safety Report 5823423-2 (Version None)
Quarter: 2008Q3

REPORT INFORMATION
  Report Type: 
  Country: None (occurrence: None)
  Receive Date: 20080725
  Receipt Date: 20070717
  Transmission Date: 20090109
  Serious: No
  Sender: FDA-Public Use
  Company Number: US-ABBOTT-07P-163-0375457-00

PATIENT
  Age: 39 Year
  Sex: Male

DRUGS (6)
  1. RITONAVIR [Interacting]
     Indication: HIV INFECTION
  2. ATAZANAVIR [Suspect]
     Indication: HIV INFECTION
  3. EMTRICITABINE W/TENOFOVIR [Concomitant]
     Indication: HIV INFECTION
     Dosage: 300/200 MG, FIXED DOSE COMBINATION
  4. BACTRIM [Concomitant]
     Indication: PNEUMOCYSTIS JIROVECI INFECTION
     Dosage: NOT REPORTED
  5. AZITHROMYCIN [Concomitant]
     Indication: OPPORTUNISTIC INFECTION PROPHYLAXIS
     Dosage: NOT REPORTED
  6. FOLATE REPLACEMENT THERAPY [Concomitant]
     Indication: ANAEMIA
     Dosage: NOT REPORTED

REACTIONS (1)
  - ALOPECIA [None]
